FAERS Safety Report 14169639 (Version 2)
Quarter: 2017Q4

REPORT INFORMATION
  Report Type: Spontaneous
  Country: ID (occurrence: ID)
  Receive Date: 20171108
  Receipt Date: 20171117
  Transmission Date: 20180321
  Serious: Yes (Death, Other)
  Sender: FDA-Public Use
  Company Number: ID-BAYER-2017-204982

PATIENT
  Age: 67 Year
  Sex: Male

DRUGS (4)
  1. MORPHIN [Concomitant]
     Active Substance: MORPHINE
  2. MICARDIS [Concomitant]
     Active Substance: TELMISARTAN
  3. GLUCOPHAG [Concomitant]
     Active Substance: METFORMIN HYDROCHLORIDE
  4. STIVARGA [Suspect]
     Active Substance: REGORAFENIB
     Indication: HEPATOCELLULAR CARCINOMA
     Dosage: UNK

REACTIONS (3)
  - General physical health deterioration [Fatal]
  - Hepatocellular carcinoma [None]
  - Metastases to bone [None]
